FAERS Safety Report 9406839 (Version 1)
Quarter: 2013Q3

REPORT INFORMATION
  Report Type: Spontaneous
  Country: RO (occurrence: RO)
  Receive Date: 20130718
  Receipt Date: 20130718
  Transmission Date: 20140515
  Serious: Yes (Disabling)
  Sender: FDA-Public Use
  Company Number: PHHY2013RO073928

PATIENT
  Age: 70 Year
  Sex: Male

DRUGS (2)
  1. EXJADE [Suspect]
     Indication: APLASIA
     Dosage: 500 MG, BID
     Route: 048
     Dates: start: 20130502, end: 20130514
  2. LAGOSA [Concomitant]
     Indication: HEPATITIS
     Dosage: UNK UKN, BID

REACTIONS (2)
  - Rash pruritic [Recovered/Resolved]
  - Rash maculo-papular [Recovered/Resolved]
